FAERS Safety Report 12948395 (Version 1)
Quarter: 2016Q4

REPORT INFORMATION
  Report Type: Spontaneous
  Country: US (occurrence: US)
  Receive Date: 20161116
  Receipt Date: 20161116
  Transmission Date: 20170207
  Serious: No
  Sender: FDA-Public Use
  Company Number: US-BAUSCH-BL-2016-014241

PATIENT
  Age: 51 Year
  Sex: Female

DRUGS (1)
  1. LOTEMAX [Suspect]
     Active Substance: LOTEPREDNOL ETABONATE
     Indication: HYPERSENSITIVITY
     Dosage: 1 DROP EVERY 4 HOURS IN RIGHT EYE AND FOUR TIMES DAILY IN LEFT EYE
     Route: 047
     Dates: start: 20160613

REACTIONS (4)
  - Drug ineffective for unapproved indication [Unknown]
  - Hypersensitivity [Unknown]
  - Condition aggravated [Unknown]
  - Off label use [Not Recovered/Not Resolved]

NARRATIVE: CASE EVENT DATE: 20160616
